FAERS Safety Report 15123822 (Version 5)
Quarter: 2020Q3

REPORT INFORMATION
  Report Type: Spontaneous
  Country: FR (occurrence: FR)
  Receive Date: 20180710
  Receipt Date: 20200707
  Transmission Date: 20201102
  Serious: Yes (Disabling)
  Sender: FDA-Public Use
  Company Number: FR-TEVA-2018-FR-923572

PATIENT
  Age: 56 Year
  Sex: Male
  Weight: 77 kg

DRUGS (4)
  1. BISOPROLOL (HEMIFUMARATE DE) [Concomitant]
     Active Substance: BISOPROLOL FUMARATE
     Route: 065
  2. ATORVASTATINE TEVA SANTE 40 MG, COMPRIM? PELLICUL? [Suspect]
     Active Substance: ATORVASTATIN
     Indication: ACUTE CORONARY SYNDROME
     Dosage: 40 MG
     Route: 048
     Dates: start: 201610, end: 20180523
  3. INEXIUM [Concomitant]
     Active Substance: ESOMEPRAZOLE
     Route: 065
  4. ASPIRINE PROTECT [Concomitant]
     Active Substance: ASPIRIN
     Route: 065

REACTIONS (1)
  - Ocular myasthenia [Recovered/Resolved]

NARRATIVE: CASE EVENT DATE: 201802
